FAERS Safety Report 10053126 (Version 3)
Quarter: 2014Q2

REPORT INFORMATION
  Report Type: Other
  Country: IT (occurrence: IT)
  Receive Date: 20140402
  Receipt Date: 20140523
  Transmission Date: 20141212
  Serious: Yes (Life-Threatening, Hospitalization, Other)
  Sender: FDA-Public Use
  Company Number: IT-TAKEDA-2014TEU002704

PATIENT
  Age: 64 Year
  Sex: Male
  Weight: 110 kg

DRUGS (8)
  1. COMPETACT [Suspect]
     Indication: DIABETES MELLITUS
     Dosage: 2 DF, QD
     Route: 048
     Dates: start: 20130701, end: 20140206
  2. METFORMIN [Interacting]
     Indication: DIABETES MELLITUS
     Dosage: 2 G, QD
     Route: 048
     Dates: start: 20130110, end: 20140206
  3. FUROSEMIDE [Interacting]
     Indication: MYOCARDIAL ISCHAEMIA
     Dosage: 1 DF, QD
     Dates: start: 20130701, end: 20140206
  4. RAMIPRIL [Interacting]
     Indication: MYOCARDIAL ISCHAEMIA
     Dosage: UNK
     Dates: start: 20130701, end: 20140206
  5. DILATREND [Concomitant]
     Dosage: 1 DF, UNK
     Route: 048
     Dates: start: 20130701, end: 20140206
  6. CARDIOASPIRIN [Concomitant]
     Dosage: 1 DF, UNK
     Route: 048
     Dates: start: 20130701, end: 20140206
  7. LEVEMIR [Concomitant]
     Dosage: 20, IU ({ 100)
     Route: 058
  8. SIVASTIN [Concomitant]
     Dosage: 1 DF, UNK
     Dates: start: 20130701, end: 20140206

REACTIONS (2)
  - Renal failure acute [Recovering/Resolving]
  - Lactic acidosis [Recovering/Resolving]
